FAERS Safety Report 19231893 (Version 2)
Quarter: 2021Q3

REPORT INFORMATION
  Report Type: Spontaneous
  Country: IN (occurrence: IN)
  Receive Date: 20210507
  Receipt Date: 20210728
  Transmission Date: 20211014
  Serious: Yes (Death, Hospitalization)
  Sender: FDA-Public Use
  Company Number: IN-PFIZER INC-2019459128

PATIENT
  Age: 63 Year
  Sex: Male

DRUGS (1)
  1. CRIZALK [Suspect]
     Active Substance: CRIZOTINIB
     Indication: NON-SMALL CELL LUNG CANCER STAGE IV
     Dosage: 250 MG, 2X/DAY (11 CYLES)
     Route: 048
     Dates: start: 20191004

REACTIONS (6)
  - Death [Fatal]
  - Oxygen saturation decreased [Unknown]
  - Pain [Unknown]
  - Skin lesion [Unknown]
  - Musculoskeletal stiffness [Unknown]
  - Abdominal discomfort [Unknown]

NARRATIVE: CASE EVENT DATE: 20210502
